FAERS Safety Report 24583811 (Version 1)
Quarter: 2024Q4

REPORT INFORMATION
  Report Type: Spontaneous
  Country: US (occurrence: None)
  Receive Date: 20241105
  Receipt Date: 20241105
  Transmission Date: 20250114
  Serious: No
  Sender: Public
  Company Number: None

PATIENT
  Age: 54 Year
  Sex: Female

DRUGS (21)
  1. ADBRY [Suspect]
     Active Substance: TRALOKINUMAB-LDRM
     Indication: Dermatitis atopic
     Route: 058
     Dates: start: 20240815, end: 20241018
  2. METHOCARBAMOL [Concomitant]
     Active Substance: METHOCARBAMOL
  3. MUPIROCIN 2%. OINT [Concomitant]
  4. PERCOCET 75/325MG [Concomitant]
  5. PRAZOSIN HYDROCHLORIDE [Concomitant]
     Active Substance: PRAZOSIN HYDROCHLORIDE
  6. PROMETHAZINE 12.5MG [Concomitant]
  7. RINVOQ [Concomitant]
     Active Substance: UPADACITINIB
  8. STIMULANT 9 8.6/50MG [Concomitant]
  9. SUMATRIPTAN [Concomitant]
     Active Substance: SUMATRIPTAN
  10. TRAZODONE [Concomitant]
     Active Substance: TRAZODONE HYDROCHLORIDE
  11. TRIAMCINOLONE 0, 1 % CREAM [Concomitant]
  12. ACETAMINOPHEN 325 MG [Concomitant]
  13. ALEDRONATE 70MG [Concomitant]
  14. AMITRIPTYLINE 10MG [Concomitant]
  15. ASPIRIN 81 MG [Concomitant]
  16. ATORVASTATIN 20MG [Concomitant]
  17. CITALOPRAM 40MG [Concomitant]
  18. ZETIA 10MG [Concomitant]
  19. FLUCONAZOLE 150MG [Concomitant]
  20. GABAPENTIN 600MG [Concomitant]
  21. HYDROXYZINE 50MG [Concomitant]

REACTIONS (3)
  - Pruritus [None]
  - Genital blister [None]
  - Blister [None]

NARRATIVE: CASE EVENT DATE: 20241018
